FAERS Safety Report 7593737-7 (Version None)
Quarter: 2011Q3

REPORT INFORMATION
  Report Type: 
  Country: None (occurrence: None)
  Receive Date: 20110706
  Receipt Date: 20110623
  Transmission Date: 20111222
  Serious: Yes (Hospitalization)
  Sender: FDA-Public Use
  Company Number: JP-UCBSA-024547

PATIENT
  Sex: Female

DRUGS (16)
  1. CERTOLIZUMAB PEGOL [Suspect]
     Indication: RHEUMATOID ARTHRITIS
     Route: 058
     Dates: start: 20090316
  2. CERTOLIZUMAB PEGOL [Suspect]
     Route: 058
     Dates: start: 20110318
  3. METHOTREXATE [Concomitant]
     Indication: RHEUMATOID ARTHRITIS
     Dosage: 4 MG- 2 MG- 2 MG
     Dates: start: 20080509
  4. AMLODIPINE BESYLATE [Concomitant]
     Dates: start: 20100812
  5. KETOPROFEN [Concomitant]
     Indication: RHEUMATOID ARTHRITIS
     Dosage: ADEQUATE DOSE
     Dates: start: 20100409
  6. CERTOLIZUMAB PEGOL [Suspect]
     Route: 058
     Dates: start: 20090928, end: 20101203
  7. CELECOXIB [Concomitant]
     Indication: RHEUMATOID ARTHRITIS
     Dates: start: 20080508
  8. KETOPROFEN [Concomitant]
     Dosage: ADEQUATE DOSE
     Dates: start: 20100730
  9. FLUOROMETHOLONE [Concomitant]
     Dosage: ADEQUATE DOSE
     Dates: start: 20110208
  10. TROXIPIDE [Concomitant]
     Dates: start: 20090226
  11. CERTOLIZUMAB PEGOL [Suspect]
     Route: 058
     Dates: start: 20110121, end: 20110121
  12. FOLIC ACID [Concomitant]
     Indication: RHEUMATOID ARTHRITIS
     Dates: start: 20071217
  13. TROXIPIDE [Concomitant]
     Dates: start: 20110216, end: 20110201
  14. DICLOFENAC SODIUM [Concomitant]
     Dosage: ADEQUATE DOSE
     Dates: start: 20100618
  15. PREDNISOLONE [Concomitant]
     Indication: RHEUMATOID ARTHRITIS
     Dosage: 1MG TABLET
     Dates: start: 20101120
  16. OFLOXACIN [Concomitant]
     Dosage: ADEQUATE DOSE
     Dates: start: 20101228, end: 20110415

REACTIONS (3)
  - RHEUMATOID ARTHRITIS [None]
  - VIITH NERVE PARALYSIS [None]
  - OTITIS MEDIA CHRONIC [None]
